FAERS Safety Report 8490319-X (Version None)
Quarter: 2012Q3

REPORT INFORMATION
  Report Type: 
  Country: None (occurrence: None)
  Receive Date: 20120705
  Receipt Date: 20120625
  Transmission Date: 20120928
  Serious: Yes (Hospitalization, Disabling, Other)
  Sender: FDA-Public Use
  Company Number: MX-SANOFI-AVENTIS-2012SA045496

PATIENT
  Age: 74 Year
  Sex: Female

DRUGS (3)
  1. ORAL ANTIDIABETICS [Concomitant]
     Indication: DIABETES MELLITUS
  2. ANTIHYPERTENSIVES [Concomitant]
  3. LANTUS [Suspect]
     Route: 058

REACTIONS (3)
  - HYPOGLYCAEMIA [None]
  - BLINDNESS [None]
  - VISUAL IMPAIRMENT [None]
